FAERS Safety Report 17294633 (Version 1)
Quarter: 2020Q1

REPORT INFORMATION
  Report Type: Spontaneous
  Country: US (occurrence: US)
  Receive Date: 20200103
  Receipt Date: 20200103
  Transmission Date: 20200409
  Serious: No
  Sender: FDA-Public Use
  Company Number: None

PATIENT
  Age: 57 Year
  Sex: Male

DRUGS (1)
  1. VOTRIENT [Suspect]
     Active Substance: PAZOPANIB HYDROCHLORIDE
     Indication: RENAL CELL CARCINOMA
     Dosage: ?          OTHER DOSE:UNKNOWN;?
     Route: 048

REACTIONS (3)
  - Diarrhoea [None]
  - Fatigue [None]
  - Therapy change [None]

NARRATIVE: CASE EVENT DATE: 20200103
